FAERS Safety Report 10056561 (Version 2)
Quarter: 2014Q3

REPORT INFORMATION
  Report Type: Report from Study
  Country: JP (occurrence: JP)
  Receive Date: 20140403
  Receipt Date: 20140723
  Transmission Date: 20150326
  Serious: Yes (Other)
  Sender: FDA-Public Use
  Company Number: JP-009507513-1403JPN014308

PATIENT
  Age: 32 Year
  Sex: Female

DRUGS (66)
  1. EMEND [Suspect]
     Active Substance: APREPITANT
     Dosage: 80 MG, ONCE
     Route: 048
     Dates: start: 20120201, end: 20120203
  2. EMEND [Suspect]
     Active Substance: APREPITANT
     Dosage: 80 MG, QD
     Route: 048
     Dates: start: 20120705, end: 20120706
  3. DOCETAXEL [Suspect]
     Active Substance: DOCETAXEL
     Indication: OVARIAN CANCER
     Dosage: 110 MG DAILY DOSAGE
     Route: 042
     Dates: start: 20120111, end: 20120111
  4. DECADRON [Concomitant]
     Active Substance: DEXAMETHASONE
     Dosage: UNK
     Dates: start: 20120704, end: 20120704
  5. ALOXI [Concomitant]
     Active Substance: PALONOSETRON HYDROCHLORIDE
     Dosage: UNK
     Dates: start: 20120411, end: 20120411
  6. LAXOBERON [Concomitant]
     Active Substance: SODIUM PICOSULFATE
     Dosage: UNK
     Dates: start: 20120113, end: 20120122
  7. EMEND [Suspect]
     Active Substance: APREPITANT
     Dosage: 125 MG, ONCE
     Route: 048
     Dates: start: 20120808, end: 20120808
  8. EMEND [Suspect]
     Active Substance: APREPITANT
     Dosage: 80 MG, QD
     Route: 048
     Dates: start: 20120223, end: 20120224
  9. EMEND [Suspect]
     Active Substance: APREPITANT
     Dosage: 80 MG, QD
     Route: 048
     Dates: start: 20120809, end: 20120810
  10. DOCETAXEL [Suspect]
     Active Substance: DOCETAXEL
     Dosage: 100 MG DAILY DOSAGE
     Route: 042
     Dates: start: 201203
  11. DECADRON [Concomitant]
     Active Substance: DEXAMETHASONE
     Dosage: UNK
     Dates: start: 20120222, end: 20120222
  12. ALOXI [Concomitant]
     Active Substance: PALONOSETRON HYDROCHLORIDE
     Dosage: UNK
     Dates: start: 201203
  13. DECADRON [Concomitant]
     Active Substance: DEXAMETHASONE
     Dosage: UNK
     Dates: start: 20120113, end: 20120115
  14. GASTER [Concomitant]
     Active Substance: FAMOTIDINE
     Dosage: UNK
     Dates: start: 20120115, end: 20120228
  15. CEFZON [Concomitant]
     Active Substance: CEFDINIR
     Dosage: UNK, ONCE
     Dates: start: 20120422, end: 20120422
  16. EMEND [Suspect]
     Active Substance: APREPITANT
     Indication: PROPHYLAXIS OF NAUSEA AND VOMITING
     Dosage: 125 MG, ONCE
     Route: 048
     Dates: start: 20120111, end: 20120111
  17. EMEND [Suspect]
     Active Substance: APREPITANT
     Dosage: 80 MG, QD
     Route: 048
     Dates: start: 20120412, end: 20120413
  18. DOCETAXEL [Suspect]
     Active Substance: DOCETAXEL
     Dosage: 100 MG DAILY DOSAGE
     Route: 042
     Dates: start: 20120411, end: 20120411
  19. ALOXI [Concomitant]
     Active Substance: PALONOSETRON HYDROCHLORIDE
     Dosage: UNK
     Dates: start: 20120201, end: 20120201
  20. EMEND [Suspect]
     Active Substance: APREPITANT
     Dosage: 125 MG, ONCE
     Route: 048
     Dates: start: 20120321, end: 20120321
  21. EMEND [Suspect]
     Active Substance: APREPITANT
     Dosage: 80 MG, QD
     Route: 048
     Dates: start: 20120517, end: 20120518
  22. DOCETAXEL [Suspect]
     Active Substance: DOCETAXEL
     Dosage: 110 MG DAILY DOSAGE
     Route: 042
     Dates: start: 20120222, end: 20120222
  23. DOCETAXEL [Suspect]
     Active Substance: DOCETAXEL
     Dosage: 100 MG DAILY DOSAGE
     Route: 042
     Dates: start: 20120809, end: 20120809
  24. DECADRON [Concomitant]
     Active Substance: DEXAMETHASONE
     Dosage: UNK
     Dates: start: 20120201, end: 20120201
  25. DECADRON [Concomitant]
     Active Substance: DEXAMETHASONE
     Dosage: UNK
     Dates: start: 201203
  26. DECADRON [Concomitant]
     Active Substance: DEXAMETHASONE
     Dosage: UNK
     Dates: start: 20120809, end: 20120809
  27. ALOXI [Concomitant]
     Active Substance: PALONOSETRON HYDROCHLORIDE
     Dosage: UNK
     Dates: start: 20120809, end: 20120809
  28. DECADRON [Concomitant]
     Active Substance: DEXAMETHASONE
     Dosage: UNK
     Dates: start: 20120223, end: 20120224
  29. MAGNESIUM OXIDE. [Concomitant]
     Active Substance: MAGNESIUM OXIDE
     Dosage: UNK
     Dates: start: 20120113, end: 20120122
  30. MAGNESIUM OXIDE. [Concomitant]
     Active Substance: MAGNESIUM OXIDE
     Dosage: UNK
     Dates: start: 20120201, end: 20120221
  31. MAGNESIUM OXIDE. [Concomitant]
     Active Substance: MAGNESIUM OXIDE
     Dosage: UNK
     Dates: start: 20120222, end: 20120228
  32. DAI-KENCHU-TO [Concomitant]
     Active Substance: MALTOSE
     Dosage: UNK
     Dates: start: 20120704, end: 20120731
  33. EMEND [Suspect]
     Active Substance: APREPITANT
     Dosage: 125 MG, ONCE
     Route: 048
     Dates: start: 20120222, end: 20120222
  34. EMEND [Suspect]
     Active Substance: APREPITANT
     Indication: PROPHYLAXIS OF NAUSEA AND VOMITING
     Dosage: 80 MG, QD
     Route: 048
     Dates: start: 20120112, end: 20120113
  35. EMEND [Suspect]
     Active Substance: APREPITANT
     Dosage: 80 MG, QD
     Route: 048
     Dates: start: 20120322, end: 20120323
  36. GASTER [Concomitant]
     Active Substance: FAMOTIDINE
     Dosage: UNK
     Dates: start: 20120704, end: 20120718
  37. LAC-B [Concomitant]
     Active Substance: BIFIDOBACTERIUM SPP.
     Dosage: UNK
     Dates: start: 20120125, end: 20120201
  38. LOXONIN [Concomitant]
     Active Substance: LOXOPROFEN SODIUM
     Dosage: UNK
     Dates: start: 20120418, end: 20120422
  39. EMEND [Suspect]
     Active Substance: APREPITANT
     Dosage: 125 MG, ONCE
     Route: 048
     Dates: start: 20120516, end: 20120516
  40. CARBOPLATIN. [Suspect]
     Active Substance: CARBOPLATIN
     Indication: OVARIAN CANCER
     Dosage: 850 MG DAILY DOSE
     Route: 042
     Dates: start: 20120111, end: 20120111
  41. CARBOPLATIN. [Suspect]
     Active Substance: CARBOPLATIN
     Dosage: 850 MG DAILY DOSAGE
     Route: 042
     Dates: start: 20120222, end: 20120222
  42. CARBOPLATIN. [Suspect]
     Active Substance: CARBOPLATIN
     Dosage: 700 MG DAILY DOSAGE
     Route: 042
     Dates: start: 20120809, end: 20120809
  43. DOCETAXEL [Suspect]
     Active Substance: DOCETAXEL
     Dosage: 110 MG DAILY DOSAGE
     Route: 042
     Dates: start: 20120201, end: 20120201
  44. DOCETAXEL [Suspect]
     Active Substance: DOCETAXEL
     Dosage: 100 MG DAILY DOSAGE
     Route: 042
     Dates: start: 20120704, end: 20120704
  45. DECADRON [Concomitant]
     Active Substance: DEXAMETHASONE
     Dosage: UNK
     Dates: start: 20120516, end: 20120516
  46. GRAN [Concomitant]
     Active Substance: FILGRASTIM
     Dosage: UNK
     Dates: start: 20120328, end: 20120331
  47. EMEND [Suspect]
     Active Substance: APREPITANT
     Dosage: 125 MG, ONCE
     Route: 048
     Dates: start: 20120411, end: 20120411
  48. EMEND [Suspect]
     Active Substance: APREPITANT
     Dosage: 125 MG, ONCE
     Route: 048
     Dates: start: 20120704, end: 20120704
  49. CARBOPLATIN. [Suspect]
     Active Substance: CARBOPLATIN
     Dosage: 800 MG DAILY DOSAGE
     Route: 042
     Dates: start: 201203
  50. CARBOPLATIN. [Suspect]
     Active Substance: CARBOPLATIN
     Dosage: 800 MG DAILY DOSAGE
     Route: 042
     Dates: start: 20120411, end: 20120411
  51. DECADRON [Concomitant]
     Active Substance: DEXAMETHASONE
     Dosage: UNK
     Dates: start: 20120411, end: 20120411
  52. ALOXI [Concomitant]
     Active Substance: PALONOSETRON HYDROCHLORIDE
     Dosage: UNK
     Dates: start: 20120111, end: 20120111
  53. ALOXI [Concomitant]
     Active Substance: PALONOSETRON HYDROCHLORIDE
     Dosage: UNK
     Dates: start: 20120516, end: 20120516
  54. GASTER [Concomitant]
     Active Substance: FAMOTIDINE
     Dosage: UNK
     Dates: start: 20120809, end: 20120812
  55. GRAN [Concomitant]
     Active Substance: FILGRASTIM
     Dosage: UNK
     Dates: start: 20120229, end: 20120303
  56. GRAN [Concomitant]
     Active Substance: FILGRASTIM
     Dosage: UNK
     Dates: start: 20120523, end: 20120526
  57. FERROMIA [Concomitant]
     Active Substance: FERROUS CITRATE
     Dosage: UNK
     Dates: start: 20120307, end: 20120327
  58. LOXONIN [Concomitant]
     Active Substance: LOXOPROFEN SODIUM
     Dosage: UNK
     Dates: start: 20120809, end: 20120812
  59. CARBOPLATIN. [Suspect]
     Active Substance: CARBOPLATIN
     Dosage: 850 MG DAILY DOSAGE
     Route: 042
     Dates: start: 20120201, end: 20120201
  60. CARBOPLATIN. [Suspect]
     Active Substance: CARBOPLATIN
     Dosage: 800 MG DAILY DOSAGE
     Route: 042
     Dates: start: 20120516, end: 20120516
  61. CARBOPLATIN. [Suspect]
     Active Substance: CARBOPLATIN
     Dosage: 800 MG DAILY DOSAGE
     Route: 042
     Dates: start: 20120704, end: 20120704
  62. DOCETAXEL [Suspect]
     Active Substance: DOCETAXEL
     Dosage: 100 MG DAILY DOSAGE
     Route: 042
     Dates: start: 20120516, end: 20120516
  63. DECADRON [Concomitant]
     Active Substance: DEXAMETHASONE
     Dosage: UNK
     Dates: start: 20120111, end: 20120111
  64. ALOXI [Concomitant]
     Active Substance: PALONOSETRON HYDROCHLORIDE
     Dosage: UNK
     Dates: start: 20120222, end: 20120222
  65. ALOXI [Concomitant]
     Active Substance: PALONOSETRON HYDROCHLORIDE
     Dosage: UNK
     Dates: start: 20120704, end: 20120704
  66. MAGNESIUM OXIDE. [Concomitant]
     Active Substance: MAGNESIUM OXIDE
     Dosage: UNK
     Dates: start: 20120809, end: 20120816

REACTIONS (8)
  - Platelet count decreased [Unknown]
  - White blood cell count decreased [Unknown]
  - Febrile neutropenia [Unknown]
  - Nausea [Unknown]
  - Anaemia [Unknown]
  - Drug prescribing error [Unknown]
  - Diarrhoea [Unknown]
  - Decreased appetite [Unknown]

NARRATIVE: CASE EVENT DATE: 20120115
